FAERS Safety Report 9698049 (Version 2)
Quarter: 2013Q4

REPORT INFORMATION
  Report Type: Spontaneous
  Country: CH (occurrence: None)
  Receive Date: 20131118
  Receipt Date: 20131212
  Transmission Date: 20140711
  Serious: Yes (Hospitalization, Other)
  Sender: FDA-Public Use
  Company Number: 20130630

PATIENT
  Sex: Female

DRUGS (2)
  1. VENOFER [Suspect]
     Indication: SERUM FERRITIN DECREASED
     Dosage: 1000 MG IN 250 ML OF NS INTRAVENOUS DRIP
     Route: 041
     Dates: start: 20131022
  2. VENOFER [Suspect]
     Indication: PREGNANCY
     Dosage: 1000 MG IN 250 ML OF NS INTRAVENOUS DRIP
     Route: 041
     Dates: start: 20131022

REACTIONS (7)
  - Exposure during pregnancy [None]
  - Tachycardia [None]
  - Nausea [None]
  - Hypovolaemia [None]
  - Rash [None]
  - Wrong technique in drug usage process [None]
  - Overdose [None]
